FAERS Safety Report 19094890 (Version 1)
Quarter: 2021Q2

REPORT INFORMATION
  Report Type: Report from Study
  Country: CA (occurrence: CA)
  Receive Date: 20210405
  Receipt Date: 20210405
  Transmission Date: 20210717
  Serious: Yes (Disabling)
  Sender: FDA-Public Use
  Company Number: CA-ASTRAZENECA-2021A167163

PATIENT
  Age: 46 Year
  Sex: Female

DRUGS (6)
  1. SYMBICORT [Concomitant]
     Active Substance: BUDESONIDE\FORMOTEROL FUMARATE DIHYDRATE
     Dosage: 2PUFFS
  2. PREDNISONE. [Concomitant]
     Active Substance: PREDNISONE
  3. BENADRYL [Concomitant]
     Active Substance: DIPHENHYDRAMINE HYDROCHLORIDE
  4. FASENRA [Suspect]
     Active Substance: BENRALIZUMAB
     Indication: ASTHMA
     Dosage: 30.0MG UNKNOWN
     Route: 058
     Dates: start: 202012
  5. FASENRA [Suspect]
     Active Substance: BENRALIZUMAB
     Indication: ASTHMA
     Dosage: 30.0MG UNKNOWN
     Route: 058
     Dates: start: 20210208, end: 20210312
  6. VENTOLIN [Concomitant]
     Active Substance: ALBUTEROL SULFATE
     Dosage: 100.0UG AS REQUIRED

REACTIONS (11)
  - Diarrhoea [Unknown]
  - Pruritus [Unknown]
  - Rhinitis allergic [Not Recovered/Not Resolved]
  - Obstructive airways disorder [Not Recovered/Not Resolved]
  - Migraine [Unknown]
  - Drug ineffective [Unknown]
  - Headache [Unknown]
  - Nausea [Unknown]
  - Cough [Unknown]
  - Dyspnoea [Unknown]
  - Alopecia [Unknown]

NARRATIVE: CASE EVENT DATE: 20210312
